FAERS Safety Report 6484778-1 (Version None)
Quarter: 2009Q4

REPORT INFORMATION
  Report Type: 
  Country: None (occurrence: None)
  Receive Date: 20091209
  Receipt Date: 20081014
  Transmission Date: 20100525
  Serious: No
  Sender: FDA-Public Use
  Company Number: A0752897A

PATIENT
  Age: 70 Year
  Sex: Female

DRUGS (2)
  1. AVANDAMET [Suspect]
     Indication: DRUG USE FOR UNKNOWN INDICATION
     Route: 048
  2. METFORMIN HCL [Suspect]
     Indication: DRUG USE FOR UNKNOWN INDICATION
     Route: 048

REACTIONS (3)
  - BLOOD GLUCOSE INCREASED [None]
  - DRUG INEFFECTIVE [None]
  - INCREASED APPETITE [None]
